FAERS Safety Report 18365556 (Version 1)
Quarter: 2020Q4

REPORT INFORMATION
  Report Type: Spontaneous
  Country: BR (occurrence: BR)
  Receive Date: 20201009
  Receipt Date: 20201009
  Transmission Date: 20210114
  Serious: Yes (Other)
  Sender: FDA-Public Use
  Company Number: BR-009507513-2010BRA001432

PATIENT
  Age: 27 Year
  Sex: Female
  Weight: 65 kg

DRUGS (1)
  1. IMPLANON [Suspect]
     Active Substance: ETONOGESTREL
     Dosage: 1 IMPLANT
     Route: 059
     Dates: start: 20181223

REACTIONS (30)
  - Menstruation irregular [Not Recovered/Not Resolved]
  - Irritability [Unknown]
  - Haemorrhoids [Unknown]
  - Migraine [Unknown]
  - Arthralgia [Unknown]
  - Amenorrhoea [Recovered/Resolved]
  - Muscle spasms [Unknown]
  - Chills [Unknown]
  - Metrorrhagia [Not Recovered/Not Resolved]
  - Joint swelling [Unknown]
  - Paraesthesia [Unknown]
  - Depression [Unknown]
  - Paraesthesia oral [Unknown]
  - Peripheral swelling [Unknown]
  - Skin fissures [Unknown]
  - Hyperhidrosis [Unknown]
  - Peripheral vascular disorder [Unknown]
  - Seborrhoea [Unknown]
  - Menorrhagia [Not Recovered/Not Resolved]
  - Vertigo [Unknown]
  - Renal pain [Unknown]
  - Pyrexia [Unknown]
  - Muscle spasms [Unknown]
  - Dry skin [Unknown]
  - Labyrinthitis [Unknown]
  - Erythema [Unknown]
  - Pain in extremity [Unknown]
  - Arrhythmia [Unknown]
  - Fluid retention [Not Recovered/Not Resolved]
  - Weight increased [Not Recovered/Not Resolved]

NARRATIVE: CASE EVENT DATE: 2019
